FAERS Safety Report 11943056 (Version 1)
Quarter: 2016Q1

REPORT INFORMATION
  Report Type: Spontaneous
  Country: US (occurrence: US)
  Receive Date: 20160125
  Receipt Date: 20160125
  Transmission Date: 20160526
  Serious: No
  Sender: FDA-Public Use
  Company Number: US-UNITED THERAPEUTICS-UNT-2015-010701

PATIENT
  Age: 68 Year
  Sex: Female
  Weight: 106.58 kg

DRUGS (3)
  1. ORENITRAM [Suspect]
     Active Substance: TREPROSTINIL
     Indication: PRODUCT USED FOR UNKNOWN INDICATION
     Dosage: UNK
     Route: 048
  2. REMODULIN [Suspect]
     Active Substance: TREPROSTINIL
     Indication: PULMONARY ARTERIAL HYPERTENSION
     Dosage: 0.025 ?G/KG/MIN, CONTINUING
     Route: 058
     Dates: start: 20150217
  3. LETAIRIS [Suspect]
     Active Substance: AMBRISENTAN
     Indication: PRODUCT USED FOR UNKNOWN INDICATION
     Dosage: 10 MG, QD
     Route: 065
     Dates: start: 20130314

REACTIONS (9)
  - Pain [Unknown]
  - Pain in extremity [Unknown]
  - Infusion site oedema [Unknown]
  - Pain in jaw [Unknown]
  - Infusion site irritation [Unknown]
  - Infusion site pain [Unknown]
  - Musculoskeletal stiffness [Unknown]
  - Infusion site discharge [Unknown]
  - Infusion site erythema [Unknown]

NARRATIVE: CASE EVENT DATE: 201508
